FAERS Safety Report 7542804-2 (Version None)
Quarter: 2011Q2

REPORT INFORMATION
  Report Type: 
  Country: None (occurrence: None)
  Receive Date: 20110524
  Receipt Date: 20110208
  Transmission Date: 20111010
  Serious: No
  Sender: FDA-Public Use
  Company Number: 025143

PATIENT
  Sex: Female
  Weight: 64.8644 kg

DRUGS (6)
  1. CIPRO [Concomitant]
  2. SYNTHROID [Concomitant]
  3. M.V.I. [Concomitant]
  4. VITAMIN A [Concomitant]
  5. VITAMIN B12 /00052601/ [Concomitant]
  6. CIMZIA [Suspect]
     Indication: CROHN'S DISEASE
     Dosage: (2 SHOTS SUBCUTANEOUS), (400 MG 1X/4 WEEKS SUBCUTANEOUS)
     Route: 058
     Dates: start: 20100901

REACTIONS (4)
  - ABDOMINAL PAIN UPPER [None]
  - WRONG TECHNIQUE IN DRUG USAGE PROCESS [None]
  - ECZEMA [None]
  - ERYTHEMA [None]
